FAERS Safety Report 16423430 (Version 2)
Quarter: 2019Q3

REPORT INFORMATION
  Report Type: Spontaneous
  Country: BE (occurrence: BE)
  Receive Date: 20190612
  Receipt Date: 20190717
  Transmission Date: 20191004
  Serious: Yes (Other)
  Sender: FDA-Public Use
  Company Number: PHHY2019BE079602

PATIENT
  Age: 67 Year
  Sex: Female
  Weight: 78 kg

DRUGS (11)
  1. OMEPRAZOLE. [Concomitant]
     Active Substance: OMEPRAZOLE
     Indication: PRODUCT USED FOR UNKNOWN INDICATION
     Dosage: UNK
     Route: 065
  2. IRINOTECAN [Suspect]
     Active Substance: IRINOTECAN
     Indication: COLORECTAL CANCER METASTATIC
     Dosage: 1 OT, Q2W
     Route: 065
     Dates: start: 20190122
  3. MAGNESIUM [Concomitant]
     Active Substance: MAGNESIUM
     Indication: PRODUCT USED FOR UNKNOWN INDICATION
     Dosage: UNK
     Route: 065
  4. AMLODIPINE [Suspect]
     Active Substance: AMLODIPINE BESYLATE
     Indication: COLORECTAL CANCER
     Dosage: UNK
     Route: 065
  5. LEUCOVORIN. [Suspect]
     Active Substance: LEUCOVORIN
     Indication: COLORECTAL CANCER METASTATIC
     Dosage: 1 OT, Q2W
     Route: 065
     Dates: start: 20190122
  6. PRIMPERAN [Concomitant]
     Active Substance: METOCLOPRAMIDE HYDROCHLORIDE
     Indication: PRODUCT USED FOR UNKNOWN INDICATION
     Dosage: UNK
     Route: 065
  7. BISOPROLOL [Concomitant]
     Active Substance: BISOPROLOL
     Indication: PRODUCT USED FOR UNKNOWN INDICATION
     Dosage: UNK
     Route: 065
  8. BEVACIZUMAB. [Suspect]
     Active Substance: BEVACIZUMAB
     Indication: COLORECTAL CANCER METASTATIC
     Dosage: 1 OT, Q2W
     Route: 065
     Dates: start: 20190122
  9. REDOMEX [Suspect]
     Active Substance: AMITRIPTYLINE HYDROCHLORIDE
     Indication: COLORECTAL CANCER
     Dosage: UNK
     Route: 065
  10. EUTHYROX [Concomitant]
     Active Substance: LEVOTHYROXINE SODIUM
     Indication: PRODUCT USED FOR UNKNOWN INDICATION
     Dosage: UNK
     Route: 065
  11. 5-FU [Suspect]
     Active Substance: FLUOROURACIL
     Indication: COLORECTAL CANCER METASTATIC
     Dosage: 1 OT, Q2W
     Route: 065
     Dates: start: 20190122

REACTIONS (5)
  - Neuropathy peripheral [Not Recovered/Not Resolved]
  - Oedema [Not Recovered/Not Resolved]
  - Venous thrombosis limb [Recovered/Resolved]
  - Mouth ulceration [Recovered/Resolved]
  - Pulpitis dental [Recovered/Resolved]

NARRATIVE: CASE EVENT DATE: 20190225
